FAERS Safety Report 19217471 (Version 2)
Quarter: 2021Q2

REPORT INFORMATION
  Report Type: Spontaneous
  Country: PT (occurrence: PT)
  Receive Date: 20210505
  Receipt Date: 20210625
  Transmission Date: 20210717
  Serious: Yes (Other)
  Sender: FDA-Public Use
  Company Number: PT-TEVA-2021-PT-1906809

PATIENT
  Age: 77 Year

DRUGS (6)
  1. STAGID [Concomitant]
     Active Substance: METFORMIN PAMOATE
  2. IRBESARTAN + HIDROCLOROTIAZIDA [Concomitant]
     Active Substance: GLYCOPYRROLATE\INDACATEROL MALEATE
  3. CONCOR [Concomitant]
     Active Substance: BISOPROLOL FUMARATE
  4. GABAPENTINA RATIOPHARM 300 MG CAPSULAS [Suspect]
     Active Substance: GABAPENTIN
     Dosage: 1CP 3 X DAY
     Route: 048
     Dates: start: 20210315, end: 20210320
  5. LERCANIDIPINE [Concomitant]
     Active Substance: LERCANIDIPINE
  6. EUTIROX [Concomitant]
     Active Substance: LEVOTHYROXINE SODIUM

REACTIONS (1)
  - Anuria [Recovered/Resolved]

NARRATIVE: CASE EVENT DATE: 20210316
